FAERS Safety Report 5140897-3 (Version None)
Quarter: 2006Q4

REPORT INFORMATION
  Report Type: 
  Country: None (occurrence: None)
  Receive Date: 20060905
  Receipt Date: 20060605
  Transmission Date: 20070319
  Serious: No
  Sender: FDA-Public Use
  Company Number: 35911

PATIENT
  Age: 79 Year
  Sex: Female

DRUGS (3)
  1. NEVANAC [Suspect]
  2. PREMARIN [Concomitant]
  3. ASPIRIN [Concomitant]

REACTIONS (2)
  - MEDICATION RESIDUE [None]
  - VISUAL DISTURBANCE [None]
